FAERS Safety Report 8770405 (Version 3)
Quarter: 2012Q4

REPORT INFORMATION
  Report Type: 
  Country: IT (occurrence: IT)
  Receive Date: 20120903
  Receipt Date: 20120918
  Transmission Date: 20130627
  Serious: Yes (Hospitalization, Other)
  Sender: FDA-Public Use
  Company Number: IT-ELI_LILLY_AND_COMPANY-IT201207003652

PATIENT
  Age: 65 Year
  Sex: Male

DRUGS (3)
  1. YENTREVE [Suspect]
     Indication: URINARY INCONTINENCE
     Dosage: 80 mg, qd
     Route: 048
     Dates: start: 20070706, end: 20120706
  2. NEBIVOLOL [Concomitant]
     Indication: ESSENTIAL HYPERTENSION
     Dosage: 5 mg, qd
     Route: 048
     Dates: start: 20120606, end: 20120706
  3. ROSUVASTATIN [Concomitant]
     Indication: HYPERCHOLESTEROLAEMIA

REACTIONS (7)
  - Sinus arrest [Recovered/Resolved]
  - Syncope [Recovered/Resolved]
  - Hypertensive cardiomyopathy [Recovered/Resolved]
  - Drug interaction [Unknown]
  - Platelet count decreased [Unknown]
  - Blood glucose increased [Unknown]
  - Off label use [Not Recovered/Not Resolved]
